FAERS Safety Report 9782625 (Version 2)
Quarter: 2014Q1

REPORT INFORMATION
  Report Type: Report from Study
  Country: US (occurrence: US)
  Receive Date: 20131226
  Receipt Date: 20140218
  Transmission Date: 20141002
  Serious: Yes (Other)
  Sender: FDA-Public Use
  Company Number: US-PURDUE-USA-2013-0109778

PATIENT
  Sex: Female
  Weight: 57.6 kg

DRUGS (1)
  1. OXY CR TAB [Suspect]
     Indication: PRODUCT USED FOR UNKNOWN INDICATION
     Dosage: UNK TABLET, Q12H
     Route: 048

REACTIONS (4)
  - Limb crushing injury [Recovered/Resolved]
  - Joint injury [Unknown]
  - Fall [Unknown]
  - Upper limb fracture [Recovered/Resolved]
